FAERS Safety Report 6921401-3 (Version None)
Quarter: 2010Q3

REPORT INFORMATION
  Report Type: 
  Country: None (occurrence: None)
  Receive Date: 20100805
  Receipt Date: 20100408
  Transmission Date: 20110219
  Serious: No
  Sender: FDA-Public Use
  Company Number: US-001831

PATIENT
  Sex: Male

DRUGS (2)
  1. DEGARELIX (240 MG, 80 MG) [Suspect]
     Dosage: 240 MG TOTAL SUBCUTANEOUS, (SUBCUTANEOUS)
     Route: 058
     Dates: start: 20090706, end: 20090706
  2. DEGARELIX (240 MG, 80 MG) [Suspect]
     Dosage: 240 MG TOTAL SUBCUTANEOUS, (SUBCUTANEOUS)
     Route: 058
     Dates: start: 20090901

REACTIONS (1)
  - HOT FLUSH [None]
